FAERS Safety Report 12985967 (Version 1)
Quarter: 2016Q4

REPORT INFORMATION
  Report Type: Spontaneous
  Country: US (occurrence: US)
  Receive Date: 20161130
  Receipt Date: 20161130
  Transmission Date: 20170207
  Serious: No
  Sender: FDA-Public Use
  Company Number: US-009507513-1611USA003393

PATIENT
  Sex: Female

DRUGS (1)
  1. JANUVIA [Suspect]
     Active Substance: SITAGLIPTIN PHOSPHATE
     Dosage: 50 MG, BID  (^POSSIBLY^ 1 AT NIGHT AND 1 IN THE MORNING)
     Route: 048

REACTIONS (2)
  - Product use issue [Unknown]
  - Dizziness [Unknown]
